FAERS Safety Report 8261553-9 (Version None)
Quarter: 2012Q1

REPORT INFORMATION
  Report Type: 
  Country: None (occurrence: None)
  Receive Date: 20120330
  Receipt Date: 20120319
  Transmission Date: 20120608
  Serious: Yes (Hospitalization)
  Sender: FDA-Public Use
  Company Number: JPI-P-020438

PATIENT
  Age: 57 Year
  Sex: Female
  Weight: 79.8331 kg

DRUGS (2)
  1. XYREM [Suspect]
     Indication: SOMNOLENCE
     Dosage: 4.5;3.75 GM (2.25 GM, 2 IN 1 D, FIRST DOSE/2 GM SECOND DOSE), ORAL
     Route: 048
     Dates: start: 20080701
  2. XYREM [Suspect]
     Indication: NARCOLEPSY
     Dosage: 4.5;3.75 GM (2.25 GM, 2 IN 1 D, FIRST DOSE/2 GM SECOND DOSE), ORAL
     Route: 048
     Dates: start: 20080701

REACTIONS (6)
  - ALOPECIA [None]
  - HYPERSOMNIA [None]
  - FALL [None]
  - OSTEOARTHRITIS [None]
  - SKIN DISORDER [None]
  - DRUG HYPERSENSITIVITY [None]
